FAERS Safety Report 24340255 (Version 1)
Quarter: 2024Q3

REPORT INFORMATION
  Report Type: Spontaneous
  Country: US (occurrence: US)
  Receive Date: 20240919
  Receipt Date: 20240919
  Transmission Date: 20241016
  Serious: No
  Sender: GLAXOSMITHKLINE
  Company Number: US-GLAXOSMITHKLINE-US2024AMR113250

PATIENT
  Sex: Female
  Weight: 68 kg

DRUGS (1)
  1. ZEJULA [Suspect]
     Active Substance: NIRAPARIB
     Indication: Ovarian cancer
     Dosage: O00 MG, QD
     Route: 048
     Dates: start: 20240711

REACTIONS (5)
  - Nausea [Unknown]
  - Contusion [Unknown]
  - Fatigue [Unknown]
  - Headache [Unknown]
  - Blood test abnormal [Unknown]
